FAERS Safety Report 24750155 (Version 5)
Quarter: 2025Q1

REPORT INFORMATION
  Report Type: Spontaneous
  Country: US (occurrence: US)
  Receive Date: 20241218
  Receipt Date: 20250123
  Transmission Date: 20250409
  Serious: Yes (Hospitalization, Disabling, Other)
  Sender: SANOFI AVENTIS
  Company Number: US-SANOFI-02340237

PATIENT
  Age: 46 Year
  Sex: Male

DRUGS (14)
  1. CABLIVI [Suspect]
     Active Substance: CAPLACIZUMAB-YHDP
     Indication: Thrombotic thrombocytopenic purpura
     Dosage: 11 UNK, QD
     Route: 050
     Dates: start: 20240107, end: 202402
  2. CABLIVI [Suspect]
     Active Substance: CAPLACIZUMAB-YHDP
     Indication: Thrombotic thrombocytopenic purpura
     Dosage: 11 UNK, QD
     Route: 050
     Dates: start: 20240107, end: 202402
  3. CABLIVI [Suspect]
     Active Substance: CAPLACIZUMAB-YHDP
     Indication: Thrombotic thrombocytopenic purpura
     Dosage: 11 UNK, QD
     Route: 050
     Dates: start: 20240107, end: 202402
  4. CABLIVI [Suspect]
     Active Substance: CAPLACIZUMAB-YHDP
     Indication: Thrombotic thrombocytopenic purpura
     Dosage: 11 UNK, QD
     Route: 050
     Dates: start: 20240107, end: 202402
  5. CABLIVI [Suspect]
     Active Substance: CAPLACIZUMAB-YHDP
     Dosage: 11 UNK, QD
     Route: 050
  6. CABLIVI [Suspect]
     Active Substance: CAPLACIZUMAB-YHDP
     Dosage: 11 UNK, QD
     Route: 050
  7. CABLIVI [Suspect]
     Active Substance: CAPLACIZUMAB-YHDP
     Dosage: 11 UNK, QD
     Route: 050
  8. CABLIVI [Suspect]
     Active Substance: CAPLACIZUMAB-YHDP
     Dosage: 11 UNK, QD
     Route: 050
  9. CARVEDILOL [Concomitant]
     Active Substance: CARVEDILOL
  10. AMLODIPINE [Concomitant]
     Active Substance: AMLODIPINE BESYLATE
  11. DILTIAZEM HYDROCHLORIDE [Concomitant]
     Active Substance: DILTIAZEM HYDROCHLORIDE
  12. CELECOXIB [Concomitant]
     Active Substance: CELECOXIB
  13. GABAPENTIN [Concomitant]
     Active Substance: GABAPENTIN
  14. LISINOPRIL [Concomitant]
     Active Substance: LISINOPRIL

REACTIONS (10)
  - Osteonecrosis [Recovering/Resolving]
  - Osteomyelitis [Recovering/Resolving]
  - Arthralgia [Not Recovered/Not Resolved]
  - Osteogenesis imperfecta [Unknown]
  - Cerebrovascular accident [Unknown]
  - Pain in extremity [Unknown]
  - Impaired work ability [Unknown]
  - Mobility decreased [Unknown]
  - Shoulder fracture [Unknown]
  - Muscle spasms [Unknown]

NARRATIVE: CASE EVENT DATE: 20240101
